FAERS Safety Report 9244419 (Version 3)
Quarter: 2013Q2

REPORT INFORMATION
  Report Type: Spontaneous
  Country: IT (occurrence: IT)
  Receive Date: 20130422
  Receipt Date: 20130516
  Transmission Date: 20140414
  Serious: Yes (Other)
  Sender: FDA-Public Use
  Company Number: IT-JNJFOC-20130407739

PATIENT
  Age: 57 Year
  Sex: Male

DRUGS (7)
  1. REMICADE [Suspect]
     Indication: PSORIASIS
     Route: 042
  2. REMICADE [Suspect]
     Indication: PSORIASIS
     Dosage: 4 VIALS
     Route: 042
     Dates: start: 20130412, end: 20130412
  3. CORTISONE [Concomitant]
     Indication: PREMEDICATION
     Route: 065
  4. TINSET [Concomitant]
     Route: 048
     Dates: start: 20130412, end: 20130412
  5. TACHIPIRINA [Concomitant]
     Route: 048
  6. METFORMIN [Concomitant]
     Route: 065
  7. ENALAPRIL  MALEATE [Concomitant]
     Dosage: HOME THERAPY
     Route: 048

REACTIONS (6)
  - Tachycardia [Recovered/Resolved]
  - Chest discomfort [Recovered/Resolved]
  - Infusion related reaction [Recovered/Resolved]
  - Cataract operation [Unknown]
  - Palpitations [Recovered/Resolved]
  - Flushing [Recovered/Resolved]
